FAERS Safety Report 6292433-6 (Version None)
Quarter: 2009Q3

REPORT INFORMATION
  Report Type: 
  Country: None (occurrence: None)
  Receive Date: 20090730
  Receipt Date: 20090730
  Transmission Date: 20100115
  Serious: Yes (Hospitalization)
  Sender: FDA-Public Use
  Company Number: None

PATIENT
  Sex: Male
  Weight: 9.3 kg

DRUGS (16)
  1. CYCLOPHOSPHAMIDE [Suspect]
     Dosage: 1598 MG
  2. DOXIL [Suspect]
     Dosage: 85 MG
  3. NEULASTA [Suspect]
     Dosage: 6 MG
  4. PREDNISONE [Suspect]
     Dosage: 400 MG
  5. RITUXIMAB (MOAB C2B8 ANTI CD20, CHIMERIC) [Suspect]
     Dosage: 799 MG
  6. VINCRISTINE SULFATE [Suspect]
     Dosage: 2 MG
  7. PEPCID [Concomitant]
  8. FONDAPARINUX [Concomitant]
  9. METOPROLOL TARTRATE [Concomitant]
  10. MOXIFLOXACIN HCL [Concomitant]
  11. ONDANSETRON [Concomitant]
  12. PREDNISONE [Concomitant]
  13. PROPOXYPHENE HCL CAP [Concomitant]
  14. SENOKOT [Concomitant]
  15. SIMETHICONE [Concomitant]
  16. VALTREX [Concomitant]

REACTIONS (1)
  - GASTROINTESTINAL HAEMORRHAGE [None]
